APPROVED DRUG PRODUCT: OLOPATADINE HYDROCHLORIDE
Active Ingredient: OLOPATADINE HYDROCHLORIDE
Strength: EQ 0.2% BASE
Dosage Form/Route: SOLUTION/DROPS;OPHTHALMIC
Application: A204620 | Product #001
Applicant: RISING PHARMA HOLDINGS INC
Approved: Jun 16, 2020 | RLD: No | RS: No | Type: OTC